FAERS Safety Report 7491155-3 (Version None)
Quarter: 2011Q2

REPORT INFORMATION
  Report Type: 
  Country: None (occurrence: None)
  Receive Date: 20110518
  Receipt Date: 20110506
  Transmission Date: 20111010
  Serious: Yes (Other)
  Sender: FDA-Public Use
  Company Number: JPI-P-014946

PATIENT
  Age: 35 Year
  Sex: Female

DRUGS (1)
  1. XYREM [Suspect]
     Indication: CATAPLEXY
     Dosage: ORAL 10.5 GM (5.25 GM, 2 IN 1 D), ORAL
     Route: 048
     Dates: start: 20090301

REACTIONS (11)
  - DYSPHONIA [None]
  - HYPERHIDROSIS [None]
  - ALOPECIA [None]
  - MOOD ALTERED [None]
  - UPPER LIMB FRACTURE [None]
  - DIARRHOEA [None]
  - RASH [None]
  - PRIMARY IMMUNODEFICIENCY SYNDROME [None]
  - BLISTER [None]
  - NERVOUSNESS [None]
  - FEELING JITTERY [None]
